FAERS Safety Report 9179841 (Version 1)
Quarter: 2013Q1

REPORT INFORMATION
  Report Type: Spontaneous
  Country: US (occurrence: US)
  Receive Date: 20130321
  Receipt Date: 20130321
  Transmission Date: 20140127
  Serious: Yes (Hospitalization, Other)
  Sender: FDA-Public Use
  Company Number: US-ROXANE LABORATORIES, INC.-2013-RO-00397RO

PATIENT
  Age: 79 Year
  Sex: Female

DRUGS (6)
  1. DONEPEZIL HYDROCHLORIDE [Suspect]
     Dosage: 5 MG
  2. DONEPEZIL HYDROCHLORIDE [Suspect]
     Dosage: 10 MG
  3. MIRTAZAPINE [Suspect]
     Dosage: 30 MG
  4. MIRTAZAPINE [Suspect]
     Dosage: 45 MG
  5. ESZOPICLONE [Suspect]
     Indication: DEPRESSION
     Dosage: 2 MG
  6. ESZOPICLONE [Suspect]
     Indication: ANXIETY

REACTIONS (4)
  - Toxic encephalopathy [Recovered/Resolved]
  - Depression [Recovered/Resolved]
  - Anxiety [Recovered/Resolved]
  - Psychotic disorder [Recovered/Resolved]
